FAERS Safety Report 8024494-8 (Version None)
Quarter: 2011Q4

REPORT INFORMATION
  Report Type: 
  Country: None (occurrence: None)
  Receive Date: 20111130
  Receipt Date: 20110822
  Transmission Date: 20120403
  Serious: Yes (Other)
  Sender: FDA-Public Use
  Company Number: 329387

PATIENT
  Age: 41 Year
  Sex: Female
  Weight: 65.3 kg

DRUGS (2)
  1. LEVEMIR FLEXPEN (INSULIN DETEMIR) SOLUTION FOR INJECTION, .0024MOL/ML [Suspect]
     Indication: TYPE 1 DIABETES MELLITUS
     Dosage: 28 U, QD AT NIGHT, SUBCUTANEOUS
     Route: 058
     Dates: start: 20050101
  2. NOVOLOG [Suspect]
     Indication: TYPE 1 DIABETES MELLITUS
     Dosage: SLIDING SCALE, SUBCUTANEOUS
     Route: 058
     Dates: start: 20050101

REACTIONS (2)
  - BLOOD GLUCOSE DECREASED [None]
  - BLOOD GLUCOSE INCREASED [None]
